FAERS Safety Report 12620239 (Version 2)
Quarter: 2016Q4

REPORT INFORMATION
  Report Type: Spontaneous
  Country: US (occurrence: US)
  Receive Date: 20160803
  Receipt Date: 20161103
  Transmission Date: 20170207
  Serious: No
  Sender: FDA-Public Use
  Company Number: US-OTSUKA-2016_011320

PATIENT
  Sex: Female

DRUGS (1)
  1. ONZETRA [Suspect]
     Active Substance: SUMATRIPTAN SUCCINATE
     Indication: MIGRAINE WITHOUT AURA
     Dosage: 11 MG (EACH NOSTRIL) FOUR TO SIX TIMES TO GET ENTIRE NASAL POWDER
     Route: 045
     Dates: start: 20160518

REACTIONS (1)
  - Drug effect incomplete [Unknown]
